FAERS Safety Report 8509380-9 (Version None)
Quarter: 2012Q3

REPORT INFORMATION
  Report Type: 
  Country: None (occurrence: None)
  Receive Date: 20120713
  Receipt Date: 20120712
  Transmission Date: 20120928
  Serious: Yes (Death, Disabling)
  Sender: FDA-Public Use
  Company Number: RU-ROCHE-1087297

PATIENT
  Age: 37 Year
  Sex: Female
  Weight: 56 kg

DRUGS (1)
  1. XELODA [Suspect]
     Indication: COLON CANCER
     Dosage: FOR 2 WEEKS
     Route: 048
     Dates: start: 20090401, end: 20101201

REACTIONS (2)
  - DISEASE PROGRESSION [None]
  - WEIGHT INCREASED [None]
